FAERS Safety Report 4896909-5 (Version None)
Quarter: 2006Q1

REPORT INFORMATION
  Report Type: 
  Country: None (occurrence: None)
  Receive Date: 20060127
  Receipt Date: 20060118
  Transmission Date: 20060701
  Serious: Yes (Life-Threatening, Disabling, Other)
  Sender: FDA-Public Use
  Company Number: GB200601002997

PATIENT
  Age: 72 Year
  Sex: Female

DRUGS (4)
  1. OLANZAPINE [Suspect]
     Dosage: 20 MG, ORAL
     Route: 048
     Dates: end: 20051223
  2. ZOPICLONE (ZOPICLONE) [Concomitant]
  3. LITHIUM CARBONATE [Concomitant]
  4. AMISULPRIDE (AMISULPRIDE) [Concomitant]

REACTIONS (2)
  - MALAISE [None]
  - THROMBOCYTOPENIA [None]
